FAERS Safety Report 16359964 (Version 1)
Quarter: 2019Q2

REPORT INFORMATION
  Report Type: Report from Study
  Country: US (occurrence: US)
  Receive Date: 20190528
  Receipt Date: 20190528
  Transmission Date: 20190711
  Serious: Yes (Death)
  Sender: FDA-Public Use
  Company Number: US-EMD SERONO-9093090

PATIENT
  Age: 30 Year
  Sex: Male

DRUGS (1)
  1. SEROSTIM [Suspect]
     Active Substance: SOMATROPIN
     Indication: CACHEXIA
     Route: 058
     Dates: start: 20180607, end: 2018

REACTIONS (1)
  - Death [Fatal]

NARRATIVE: CASE EVENT DATE: 201811
